FAERS Safety Report 5413482-3 (Version None)
Quarter: 2007Q3

REPORT INFORMATION
  Report Type: 
  Country: None (occurrence: None)
  Receive Date: 20070814
  Receipt Date: 20070731
  Transmission Date: 20080115
  Serious: Yes (Other)
  Sender: FDA-Public Use
  Company Number: DE-AMGEN-UK236771

PATIENT
  Sex: Female
  Weight: 48 kg

DRUGS (4)
  1. NEULASTA [Suspect]
     Indication: CHEMOTHERAPY
     Route: 058
     Dates: start: 20070614
  2. FLUOROURACIL [Concomitant]
     Dates: start: 20070321, end: 20070704
  3. EPIRUBICIN [Concomitant]
     Dates: start: 20070321, end: 20070704
  4. CYCLOPHOSPHAMIDE [Concomitant]
     Dates: start: 20070321, end: 20070704

REACTIONS (4)
  - BONE PAIN [None]
  - DYSPNOEA [None]
  - GENERALISED ERYTHEMA [None]
  - TREMOR [None]
